FAERS Safety Report 22176974 (Version 1)
Quarter: 2023Q2

REPORT INFORMATION
  Report Type: Spontaneous
  Country: SE (occurrence: SE)
  Receive Date: 20230405
  Receipt Date: 20230405
  Transmission Date: 20230721
  Serious: Yes (Other)
  Sender: FDA-Public Use
  Company Number: None

PATIENT
  Age: 56 Year
  Sex: Female

DRUGS (1)
  1. FLUCONAZOLE [Suspect]
     Active Substance: FLUCONAZOLE
     Indication: Product used for unknown indication
     Route: 065
     Dates: start: 20221026, end: 20221028

REACTIONS (6)
  - Dyspnoea [Recovered/Resolved]
  - Headache [Recovering/Resolving]
  - Face oedema [Recovering/Resolving]
  - Chest discomfort [Recovered/Resolved]
  - Constipation [Recovering/Resolving]
  - Lymphostasis [Recovered/Resolved]

NARRATIVE: CASE EVENT DATE: 20221026
